FAERS Safety Report 12961120 (Version 2)
Quarter: 2016Q4

REPORT INFORMATION
  Report Type: Spontaneous
  Country: US (occurrence: US)
  Receive Date: 20161121
  Receipt Date: 20161121
  Transmission Date: 20170207
  Serious: Yes (Other)
  Sender: FDA-Public Use
  Company Number: US-PFIZER INC-2016534349

PATIENT

DRUGS (1)
  1. PROSTIN VR PEDIATRIC [Suspect]
     Active Substance: ALPROSTADIL
     Dosage: 0.1- 0.2 MCG/KG/MIN
     Route: 042

REACTIONS (1)
  - Drug ineffective [Unknown]
